FAERS Safety Report 9336469 (Version 1)
Quarter: 2013Q2

REPORT INFORMATION
  Report Type: Spontaneous
  Country: GB (occurrence: GB)
  Receive Date: 20130607
  Receipt Date: 20130607
  Transmission Date: 20140414
  Serious: Yes (Other)
  Sender: FDA-Public Use
  Company Number: GB-ACCORD-017879

PATIENT
  Age: 74 Year
  Sex: Female
  Weight: 58.51 kg

DRUGS (10)
  1. BENDROFLUMETHIAZIDE [Concomitant]
  2. LOSARTAN POTASSIUM [Concomitant]
  3. LEVOTHYROXINE SODIUM [Concomitant]
  4. BEZAFIBRATE [Suspect]
     Indication: HYPERCHOLESTEROLAEMIA
     Dosage: TAKEN IN THE MORNING
     Route: 048
  5. BISOPROLOL FUMARATE [Concomitant]
  6. SIMVASTATIN [Suspect]
     Indication: HYPERCHOLESTEROLAEMIA
     Dosage: TAKEN IN THE MORNING
     Route: 048
  7. CLOPIDOGREL [Concomitant]
  8. ATORVASTATIN [Suspect]
     Indication: HYPERCHOLESTEROLAEMIA
     Dosage: TAKEN IN THE MORNING
     Route: 048
  9. PRAVASTATIN SODIUM [Suspect]
     Indication: HYPERCHOLESTEROLAEMIA
     Dosage: TAKEN IN THE MORNING
     Route: 048
  10. LIPITOR [Suspect]
     Indication: HYPERCHOLESTEROLAEMIA
     Dosage: TAKEN IN THE MORNING
     Route: 048

REACTIONS (3)
  - Myalgia [Recovered/Resolved with Sequelae]
  - Nausea [Recovered/Resolved]
  - Vision blurred [Recovered/Resolved]
